FAERS Safety Report 14272472 (Version 2)
Quarter: 2018Q1

REPORT INFORMATION
  Report Type: Spontaneous
  Country: DE (occurrence: DE)
  Receive Date: 20171211
  Receipt Date: 20180111
  Transmission Date: 20180508
  Serious: Yes (Hospitalization, Congenital Anomaly, Other)
  Sender: FDA-Public Use
  Company Number: DE-OTSUKA-2016_020438

PATIENT
  Age: 0 Day
  Sex: Male
  Weight: 3.93 kg

DRUGS (4)
  1. L-THYROXIN [Suspect]
     Active Substance: LEVOTHYROXINE SODIUM
     Indication: HYPOTHYROIDISM
     Dosage: 275 ?G, QD
     Route: 064
  2. FOLIO [Suspect]
     Active Substance: FOLIC ACID
     Indication: PROPHYLAXIS OF NEURAL TUBE DEFECT
     Dosage: 0.4 MG, QD
     Route: 064
  3. FOLIO [Suspect]
     Active Substance: FOLIC ACID
     Indication: PRODUCT USED FOR UNKNOWN INDICATION
     Dosage: 0.4 MG, QD
     Route: 064
  4. ABILIFY [Suspect]
     Active Substance: ARIPIPRAZOLE
     Indication: BIPOLAR DISORDER
     Dosage: 10 MG, QD
     Route: 064
     Dates: start: 20150605, end: 20160226

REACTIONS (4)
  - Congenital hydronephrosis [Not Recovered/Not Resolved]
  - Foetal exposure during pregnancy [Unknown]
  - Urinary tract infection neonatal [Unknown]
  - Renal dysplasia [Not Recovered/Not Resolved]

NARRATIVE: CASE EVENT DATE: 20160226
